FAERS Safety Report 5157182-6 (Version None)
Quarter: 2006Q4

REPORT INFORMATION
  Report Type: 
  Country: None (occurrence: None)
  Receive Date: 20061127
  Receipt Date: 20061113
  Transmission Date: 20070319
  Serious: Yes (Hospitalization, Other)
  Sender: FDA-Public Use
  Company Number: US-ELI_LILLY_AND_COMPANY-US200611002653

PATIENT
  Sex: Female

DRUGS (3)
  1. FORTEO [Suspect]
     Indication: OSTEOPOROSIS
     Dates: start: 20060101
  2. DETROL [Concomitant]
     Dosage: UNK UNK, UNKNOWN
  3. ESTROGEL [Concomitant]
     Dosage: UNK UNK, UNKNOWN

REACTIONS (2)
  - FALL [None]
  - HEAD INJURY [None]
